FAERS Safety Report 8005755-5 (Version None)
Quarter: 2011Q4

REPORT INFORMATION
  Report Type: 
  Country: None (occurrence: None)
  Receive Date: 20111223
  Receipt Date: 20111223
  Transmission Date: 20120403
  Serious: Yes (Life-Threatening)
  Sender: FDA-Public Use
  Company Number: IT-SANOFI-AVENTIS-2011SA082130

PATIENT
  Age: 35 Year
  Sex: Male

DRUGS (2)
  1. LANTUS [Suspect]
     Route: 058
     Dates: start: 20100122, end: 20111130
  2. HUMALOG [Suspect]
     Route: 058
     Dates: start: 20100122, end: 20111130

REACTIONS (4)
  - ROAD TRAFFIC ACCIDENT [None]
  - MULTIPLE INJURIES [None]
  - HYPOGLYCAEMIA [None]
  - LOSS OF CONSCIOUSNESS [None]
